FAERS Safety Report 26157626 (Version 1)
Quarter: 2025Q4

REPORT INFORMATION
  Report Type: Report from Study
  Country: CA (occurrence: CA)
  Receive Date: 20251215
  Receipt Date: 20251215
  Transmission Date: 20260118
  Serious: Yes (Hospitalization, Other)
  Sender: TAKEDA
  Company Number: CA-TAKEDA-2025TUS111378

PATIENT
  Age: 74 Year
  Sex: Female

DRUGS (6)
  1. VEDOLIZUMAB [Suspect]
     Active Substance: VEDOLIZUMAB
     Indication: Colitis ulcerative
     Dosage: 300 MILLIGRAM
  2. VITAMIN D NOS [Concomitant]
     Active Substance: CHOLECALCIFEROL\ERGOCALCIFEROL
     Dosage: 10 INTERNATIONAL UNIT
  3. BIO CAL D [Concomitant]
     Dosage: UNK
  4. PANTOPRAZOLE SODIUM [Concomitant]
     Active Substance: PANTOPRAZOLE SODIUM
     Dosage: UNK
  5. PREGABALIN [Concomitant]
     Active Substance: PREGABALIN
     Indication: Osteoarthritis
     Dosage: UNK
  6. MESALAMINE [Concomitant]
     Active Substance: MESALAMINE
     Dosage: UNK

REACTIONS (2)
  - Carotid artery stenosis [Recovered/Resolved]
  - Palpitations [Recovered/Resolved]
